FAERS Safety Report 10769040 (Version 1)
Quarter: 2015Q1

REPORT INFORMATION
  Report Type: Spontaneous
  Country: US (occurrence: None)
  Receive Date: 20150205
  Receipt Date: 20150205
  Transmission Date: 20150721
  Serious: Yes (Hospitalization)
  Sender: FDA-Public Use
  Company Number: None

PATIENT
  Age: 85 Year
  Sex: Female
  Weight: 59.2 kg

DRUGS (11)
  1. ECOTRIN [Concomitant]
     Active Substance: ASPIRIN
  2. APAP [Concomitant]
     Active Substance: ACETAMINOPHEN
  3. FOLIC ACID. [Concomitant]
     Active Substance: FOLIC ACID
  4. ASCORBIC ACID. [Concomitant]
     Active Substance: ASCORBIC ACID
  5. COZAAR [Concomitant]
     Active Substance: LOSARTAN POTASSIUM
  6. ZOFRAN [Concomitant]
     Active Substance: ONDANSETRON HYDROCHLORIDE
  7. EPINEPHRINE. [Concomitant]
     Active Substance: EPINEPHRINE
  8. ROBITUSSIN (GUAIFENESIN) [Concomitant]
     Active Substance: GUAIFENESIN
  9. NORVASC [Suspect]
     Active Substance: AMLODIPINE BESYLATE
     Indication: HYPERTENSION
     Dosage: RECENTLY RESUMED
     Route: 048
  10. ARICEPT [Concomitant]
     Active Substance: DONEPEZIL HYDROCHLORIDE
  11. NAMENDA [Concomitant]
     Active Substance: MEMANTINE HYDROCHLORIDE

REACTIONS (1)
  - Angioedema [None]

NARRATIVE: CASE EVENT DATE: 20141007
